FAERS Safety Report 17530807 (Version 3)
Quarter: 2020Q2

REPORT INFORMATION
  Report Type: Report from Study
  Country: US (occurrence: US)
  Receive Date: 20200311
  Receipt Date: 20200418
  Transmission Date: 20200713
  Serious: Yes (Other)
  Sender: FDA-Public Use
  Company Number: NVSC2020US068945

PATIENT
  Age: 69 Year
  Sex: Male

DRUGS (3)
  1. INC424A [Suspect]
     Active Substance: RUXOLITINIB
     Indication: MYELOFIBROSIS
     Dosage: 5 MG, BID
     Route: 048
     Dates: start: 20191220, end: 20200105
  2. FLUDARABINE PHOSPHATE. [Suspect]
     Active Substance: FLUDARABINE PHOSPHATE
     Indication: MYELOFIBROSIS
     Dosage: 30MG/M2 (50MG), QD
     Route: 042
     Dates: start: 20191228, end: 20200101
  3. MELPHALAN. [Suspect]
     Active Substance: MELPHALAN
     Indication: MYELOFIBROSIS
     Dosage: 100MG/M2 (170MG), ONCE
     Route: 042
     Dates: start: 20191231, end: 20191231

REACTIONS (1)
  - Peripheral sensory neuropathy [Recovered/Resolved]

NARRATIVE: CASE EVENT DATE: 20200106
